FAERS Safety Report 26062273 (Version 1)
Quarter: 2025Q4

REPORT INFORMATION
  Report Type: Spontaneous
  Country: EU (occurrence: EU)
  Receive Date: 20251119
  Receipt Date: 20251119
  Transmission Date: 20260117
  Serious: Yes (Death, Hospitalization, Other)
  Sender: Kenvue
  Company Number: None

PATIENT
  Age: 32 Year

DRUGS (1)
  1. IMODIUM [Suspect]
     Active Substance: LOPERAMIDE HYDROCHLORIDE
     Indication: Product used for unknown indication
     Dosage: MORE THAN 100 TABLETS A DAY

REACTIONS (2)
  - Drug dependence [Fatal]
  - Completed suicide [Fatal]
